FAERS Safety Report 14186488 (Version 1)
Quarter: 2017Q4

REPORT INFORMATION
  Report Type: Spontaneous
  Country: US (occurrence: US)
  Receive Date: 20171114
  Receipt Date: 20171114
  Transmission Date: 20180321
  Serious: No
  Sender: FDA-Public Use
  Company Number: US-009507513-1711USA001226

PATIENT
  Sex: Male

DRUGS (4)
  1. INTRON A [Suspect]
     Active Substance: INTERFERON ALFA-2B
     Indication: NON-HODGKIN^S LYMPHOMA
     Dosage: INJECT 1 MIU(0.17 ML ),THREE TIMES A WEEK(DISCARD 30 DAYS AFTER INITIAL USE),STRENGTH 18 MIU 3ML MDV
     Route: 058
     Dates: start: 20160607
  2. WARFARIN [Concomitant]
     Active Substance: WARFARIN
     Dosage: UNKNOWN
  3. METFORMIN [Concomitant]
     Active Substance: METFORMIN HYDROCHLORIDE
     Dosage: UNKNOWN
  4. METOPROLOL. [Concomitant]
     Active Substance: METOPROLOL
     Dosage: UNKNOWN (EXTENDED RELEASE)

REACTIONS (2)
  - Fatigue [Unknown]
  - Platelet count decreased [Unknown]
